FAERS Safety Report 10221874 (Version 1)
Quarter: 2014Q2

REPORT INFORMATION
  Report Type: Spontaneous
  Country: US (occurrence: None)
  Receive Date: 20140605
  Receipt Date: 20140605
  Transmission Date: 20141212
  Serious: No
  Sender: FDA-Public Use
  Company Number: None

PATIENT
  Age: 39 Year
  Sex: Male
  Weight: 175.1 kg

DRUGS (1)
  1. CYTARABINE [Suspect]
     Dates: start: 20140522

REACTIONS (8)
  - Renal failure [None]
  - Hypotension [None]
  - Diarrhoea [None]
  - Rash erythematous [None]
  - Skin exfoliation [None]
  - Hypovolaemia [None]
  - Pyrexia [None]
  - Urinary tract infection fungal [None]
